FAERS Safety Report 8545841-4 (Version None)
Quarter: 2012Q3

REPORT INFORMATION
  Report Type: 
  Country: None (occurrence: None)
  Receive Date: 20120727
  Receipt Date: 20111111
  Transmission Date: 20120928
  Serious: No
  Sender: FDA-Public Use
  Company Number: US-ASTRAZENECA-2011SE68724

PATIENT
  Sex: Female

DRUGS (3)
  1. CELEXA [Concomitant]
     Indication: DEPRESSION
  2. PAIN MEDICATION [Concomitant]
     Indication: PAIN
  3. SEROQUEL XR [Suspect]
     Indication: DEPRESSION
     Dosage: EVERY DAY
     Route: 048

REACTIONS (5)
  - ABDOMINAL DISCOMFORT [None]
  - NAUSEA [None]
  - DEPRESSION [None]
  - DRUG DOSE OMISSION [None]
  - DIZZINESS [None]
